FAERS Safety Report 5491841-0 (Version None)
Quarter: 2007Q4

REPORT INFORMATION
  Report Type: 
  Country: None (occurrence: None)
  Receive Date: 20071018
  Receipt Date: 20071002
  Transmission Date: 20080405
  Serious: Yes (Other)
  Sender: FDA-Public Use
  Company Number: 1-15382024

PATIENT
  Age: 32 Year
  Sex: Female

DRUGS (8)
  1. DYNACIN [Suspect]
     Indication: SWEAT GLAND INFECTION
     Dates: end: 20070301
  2. REBIF [Suspect]
     Indication: MULTIPLE SCLEROSIS
     Dosage: 44 MCG/3 TIMES WKLY/SC
     Route: 058
     Dates: start: 20060314, end: 20070301
  3. SEROQUEL [Suspect]
     Indication: INSOMNIA
     Dates: end: 20070301
  4. RELPAX [Suspect]
     Indication: MIGRAINE
     Dosage: PRN
     Dates: end: 20070301
  5. CELEXA [Suspect]
     Indication: DEPRESSION
     Dates: end: 20070301
  6. PROVIGIL [Suspect]
     Indication: FATIGUE
     Dates: end: 20070301
  7. VESICARE [Suspect]
     Indication: BLADDER DISORDER
     Dates: end: 20070301
  8. BACLOFEN [Suspect]
     Indication: MUSCLE SPASMS
     Dates: end: 20070301

REACTIONS (4)
  - ABORTION SPONTANEOUS [None]
  - BLIGHTED OVUM [None]
  - DRUG EXPOSURE DURING PREGNANCY [None]
  - PREGNANCY [None]
